FAERS Safety Report 16353123 (Version 6)
Quarter: 2019Q3

REPORT INFORMATION
  Report Type: Spontaneous
  Country: US (occurrence: US)
  Receive Date: 20190524
  Receipt Date: 20190802
  Transmission Date: 20191004
  Serious: Yes (Other)
  Sender: FDA-Public Use
  Company Number: US-PFIZER INC-2019219400

PATIENT
  Age: 38 Year
  Sex: Male

DRUGS (2)
  1. BENEFIX [Suspect]
     Active Substance: COAGULATION FACTOR IX RECOMBINANT HUMAN\ISOPROPYL ALCOHOL
     Indication: HAEMORRHAGE
     Dosage: UNK, AS NEEDED (AS NEEDED 40-50 UNITS /KG MINOR BLEED 80-100 UNITS / KG MAJOR)
     Route: 042
     Dates: start: 2011
  2. BENEFIX [Suspect]
     Active Substance: COAGULATION FACTOR IX RECOMBINANT HUMAN\ISOPROPYL ALCOHOL
     Indication: INJURY

REACTIONS (4)
  - Intentional product misuse [Unknown]
  - Haemorrhage [Unknown]
  - Injury [Unknown]
  - Soft tissue haemorrhage [Recovered/Resolved]

NARRATIVE: CASE EVENT DATE: 20190510
